FAERS Safety Report 10595389 (Version 1)
Quarter: 2014Q4

REPORT INFORMATION
  Report Type: Spontaneous
  Country: CA (occurrence: None)
  Receive Date: 20141119
  Receipt Date: 20141119
  Transmission Date: 20150529
  Serious: No
  Sender: FDA-Public Use
  Company Number: None

PATIENT
  Age: 81 Year
  Sex: Female
  Weight: 81.65 kg

DRUGS (2)
  1. PRADAXA [Suspect]
     Active Substance: DABIGATRAN ETEXILATE MESYLATE
     Indication: ATRIAL FIBRILLATION
     Dosage: 2 PILLS
  2. PRADAXA [Suspect]
     Active Substance: DABIGATRAN ETEXILATE MESYLATE
     Indication: ANTICOAGULANT THERAPY
     Dosage: 2 PILLS

REACTIONS (7)
  - Oropharyngeal discomfort [None]
  - Sensation of foreign body [None]
  - Pain [None]
  - Discomfort [None]
  - Stress [None]
  - Sleep disorder [None]
  - Fatigue [None]

NARRATIVE: CASE EVENT DATE: 20141117
